FAERS Safety Report 17374729 (Version 2)
Quarter: 2021Q3

REPORT INFORMATION
  Report Type: Spontaneous
  Country: US (occurrence: US)
  Receive Date: 20200206
  Receipt Date: 20210708
  Transmission Date: 20211014
  Serious: Yes (Other)
  Sender: FDA-Public Use
  Company Number: US-TEVA-2020-US-1181197

PATIENT
  Sex: Female

DRUGS (11)
  1. VALSARTAN/HYDROCHLOROTHIAZIDE SANDOZ [Suspect]
     Active Substance: HYDROCHLOROTHIAZIDE\VALSARTAN
     Dosage: 160/12.5MG
     Dates: start: 201301, end: 201404
  2. VALSARTAN/HYDROCHLOROTHIAZIDE APOTEX [Suspect]
     Active Substance: HYDROCHLOROTHIAZIDE\VALSARTAN
     Indication: HYPERTENSION
     Dosage: 160/12.5MG
     Dates: start: 201405, end: 201504
  3. VALSARTAN/HYDROCHLOROTHIAZIDE LUPIN [Suspect]
     Active Substance: HYDROCHLOROTHIAZIDE\VALSARTAN
     Indication: HYPERTENSION
     Dosage: 160/12.5MG
     Dates: start: 201504, end: 201605
  4. VALSARTAN/HYDROCHLOROTHIAZIDE AUROBINDO [Suspect]
     Active Substance: HYDROCHLOROTHIAZIDE\VALSARTAN
     Dates: start: 201608, end: 201608
  5. VALSARTAN/HYDROCHLOROTHIAZIDE SANDOZ [Suspect]
     Active Substance: HYDROCHLOROTHIAZIDE\VALSARTAN
     Indication: HYPERTENSION
     Dosage: 320/12.5MG
     Dates: start: 201210, end: 201212
  6. VALSARTAN/HYDROCHLOROTHIAZIDE NOVARTIS [Suspect]
     Active Substance: HYDROCHLOROTHIAZIDE\VALSARTAN
     Indication: HYPERTENSION
     Dosage: 160/12.5MG
     Dates: start: 201011, end: 201102
  7. VALSARTAN/HYDROCHLOROTHIAZIDE NOVARTIS [Suspect]
     Active Substance: HYDROCHLOROTHIAZIDE\VALSARTAN
     Dosage: 320/12.5MG
     Dates: start: 201202, end: 201202
  8. VALSARTAN/HYDROCHLOROTHIAZIDE NOVARTIS [Suspect]
     Active Substance: HYDROCHLOROTHIAZIDE\VALSARTAN
     Dosage: 320/12.5MG
     Dates: start: 201203, end: 201208
  9. VALSARTAN/HYDROCHLOROTHIAZIDE SANDOZ [Suspect]
     Active Substance: HYDROCHLOROTHIAZIDE\VALSARTAN
     Dosage: 160/12.5MG
     Dates: start: 201308, end: 201310
  10. VALSARTAN/HYDROCHLOROTHIAZIDE AUROBINDO [Suspect]
     Active Substance: HYDROCHLOROTHIAZIDE\VALSARTAN
     Indication: HYPERTENSION
     Dosage: 160/12.5MG
     Dates: start: 201505, end: 201505
  11. VALSARTAN/HYDROCHLOROTHIAZIDE SOLCO [Suspect]
     Active Substance: HYDROCHLOROTHIAZIDE\VALSARTAN
     Indication: HYPERTENSION
     Dosage: 160/12.5MG
     Dates: start: 201606, end: 201807

REACTIONS (1)
  - Hepatic cancer [Unknown]
